FAERS Safety Report 15284926 (Version 1)
Quarter: 2018Q4

REPORT INFORMATION
  Report Type: Spontaneous
  Country: FR (occurrence: FR)
  Receive Date: 20180816
  Receipt Date: 20180816
  Transmission Date: 20190204
  Serious: Yes (Hospitalization)
  Sender: FDA-Public Use
  Company Number: FR-BAYER-2018-153507

PATIENT
  Age: 84 Year
  Sex: Male
  Weight: 75 kg

DRUGS (6)
  1. ADEMPAS [Suspect]
     Active Substance: RIOCIGUAT
     Indication: PULMONARY ARTERIAL HYPERTENSION
     Dosage: 2.5 MG, QD
     Route: 048
  2. TRACLEER [Suspect]
     Active Substance: BOSENTAN
     Indication: PULMONARY ARTERIAL HYPERTENSION
     Dosage: 125 MG, QD
     Route: 048
  3. TOPALGIC [SUPROFEN] [Suspect]
     Active Substance: SUPROFEN
     Indication: PAIN
     Dosage: 50 MG, UNK
     Route: 048
  4. ATARAX [Concomitant]
     Active Substance: HYDROXYZINE HYDROCHLORIDE
     Indication: PRODUCT USED FOR UNKNOWN INDICATION
     Dosage: 25 MG, QD
     Route: 048
  5. XATRAL [Concomitant]
     Active Substance: ALFUZOSIN
     Indication: PROSTATIC ADENOMA
     Dosage: 10 MG, QD
     Route: 048
  6. DUROGESIC [Suspect]
     Active Substance: FENTANYL
     Indication: PAIN
     Dosage: UNK
     Route: 062

REACTIONS (2)
  - Dyspnoea [Recovered/Resolved]
  - Hypotension [Recovered/Resolved]

NARRATIVE: CASE EVENT DATE: 20180124
